FAERS Safety Report 9526192 (Version 1)
Quarter: 2013Q3

REPORT INFORMATION
  Report Type: Report from Study
  Country: AU (occurrence: AU)
  Receive Date: 20130916
  Receipt Date: 20130916
  Transmission Date: 20140515
  Serious: Yes (Other)
  Sender: FDA-Public Use
  Company Number: PHHY2013AU102289

PATIENT
  Sex: Male

DRUGS (1)
  1. CLOZARIL [Suspect]
     Dosage: 175 MG, UNK
     Dates: start: 20100415

REACTIONS (2)
  - Condition aggravated [Unknown]
  - Antipsychotic drug level decreased [Unknown]
